FAERS Safety Report 4956395-3 (Version None)
Quarter: 2006Q1

REPORT INFORMATION
  Report Type: 
  Country: None (occurrence: None)
  Receive Date: 20060328
  Receipt Date: 20060328
  Transmission Date: 20060701
  Serious: Yes (Death)
  Sender: FDA-Public Use
  Company Number: None

PATIENT
  Sex: Female
  Weight: 82.5 kg

DRUGS (3)
  1. ERBITUX [Suspect]
     Indication: COLON CANCER METASTATIC
     Dosage: 750 MG ONCE OVER 120 MINS IV
     Route: 042
     Dates: start: 20060301
  2. ERBITUX [Suspect]
     Indication: METASTASES TO LIVER
     Dosage: 750 MG ONCE OVER 120 MINS IV
     Route: 042
     Dates: start: 20060301
  3. ERBITUX [Suspect]
     Indication: METASTASES TO LUNG
     Dosage: 750 MG ONCE OVER 120 MINS IV
     Route: 042
     Dates: start: 20060301

REACTIONS (4)
  - CARDIO-RESPIRATORY ARREST [None]
  - FALL [None]
  - HYPOTENSION [None]
  - INFUSION RELATED REACTION [None]
